FAERS Safety Report 18066729 (Version 7)
Quarter: 2023Q2

REPORT INFORMATION
  Report Type: Spontaneous
  Country: US (occurrence: US)
  Receive Date: 20200724
  Receipt Date: 20230505
  Transmission Date: 20230721
  Serious: Yes (Other)
  Sender: FDA-Public Use
  Company Number: US-PFIZER INC-2020282528

PATIENT
  Age: 65 Year
  Sex: Female

DRUGS (1)
  1. XELJANZ XR [Suspect]
     Active Substance: TOFACITINIB CITRATE
     Indication: Rheumatoid arthritis
     Dosage: 11 MG, DAILY
     Route: 048

REACTIONS (11)
  - Dementia [Not Recovered/Not Resolved]
  - Rheumatoid arthritis [Unknown]
  - Fall [Unknown]
  - Pain [Unknown]
  - Sensitivity to weather change [Unknown]
  - Hypoacusis [Unknown]
  - Anaemia [Unknown]
  - Disorientation [Not Recovered/Not Resolved]
  - Back disorder [Unknown]
  - Visual impairment [Unknown]
  - Tooth disorder [Unknown]
